FAERS Safety Report 19681903 (Version 17)
Quarter: 2024Q3

REPORT INFORMATION
  Report Type: Report from Study
  Country: US (occurrence: US)
  Receive Date: 20210810
  Receipt Date: 20240903
  Transmission Date: 20241017
  Serious: Yes (Hospitalization, Other)
  Sender: TAKEDA
  Company Number: US-TAKEDA-US202021861

PATIENT
  Age: 72 Year
  Sex: Female

DRUGS (7)
  1. HUMAN IMMUNOGLOBULIN G [Suspect]
     Active Substance: HUMAN IMMUNOGLOBULIN G
     Indication: Primary immunodeficiency syndrome
     Dosage: 5 GRAM, 1/WEEK
     Route: 058
  2. HUMAN IMMUNOGLOBULIN G [Suspect]
     Active Substance: HUMAN IMMUNOGLOBULIN G
     Indication: Immunodeficiency common variable
     Dosage: UNK
     Route: 042
  3. HUMAN IMMUNOGLOBULIN G [Suspect]
     Active Substance: HUMAN IMMUNOGLOBULIN G
     Dosage: 6 GRAM, 1/WEEK
     Route: 058
  4. HUMAN IMMUNOGLOBULIN G [Suspect]
     Active Substance: HUMAN IMMUNOGLOBULIN G
     Dosage: 10 GRAM, Q2WEEKS
     Route: 058
  5. HUMAN IMMUNOGLOBULIN G [Suspect]
     Active Substance: HUMAN IMMUNOGLOBULIN G
     Dosage: 10 GRAM, Q2WEEKS
     Route: 065
  6. HUMAN IMMUNOGLOBULIN G [Suspect]
     Active Substance: HUMAN IMMUNOGLOBULIN G
     Dosage: UNK
     Route: 058
  7. GAMUNEX-C [Suspect]
     Active Substance: HUMAN IMMUNOGLOBULIN G
     Indication: Primary immunodeficiency syndrome
     Dosage: UNK
     Route: 065

REACTIONS (37)
  - Bronchitis [Unknown]
  - Loss of consciousness [Unknown]
  - Skin tightness [Unknown]
  - Incorrect product administration duration [Unknown]
  - Hypoaesthesia [Unknown]
  - Dysgeusia [Unknown]
  - Infusion site swelling [Unknown]
  - Lip swelling [Recovered/Resolved]
  - Gastrointestinal disorder [Unknown]
  - Dyspnoea [Recovered/Resolved]
  - Abscess limb [Unknown]
  - Nasopharyngitis [Unknown]
  - Fall [Unknown]
  - Eye contusion [Unknown]
  - Blood pressure decreased [Unknown]
  - Head injury [Unknown]
  - Illness [Recovering/Resolving]
  - Dental caries [Unknown]
  - Chronic obstructive pulmonary disease [Unknown]
  - Scar [Unknown]
  - Emphysema [Unknown]
  - Syringe issue [Unknown]
  - Blood test abnormal [Unknown]
  - Device infusion issue [Unknown]
  - Insurance issue [Unknown]
  - Blood pressure abnormal [Recovered/Resolved]
  - Product preparation issue [Unknown]
  - Incorrect dose administered [Unknown]
  - Electrocardiogram ambulatory abnormal [Unknown]
  - Inappropriate schedule of product administration [Unknown]
  - Electric shock sensation [Unknown]
  - Contusion [Unknown]
  - Erythema [Unknown]
  - Cough [Unknown]
  - Headache [Unknown]
  - Dizziness [Unknown]
  - Infusion site pain [Unknown]

NARRATIVE: CASE EVENT DATE: 20200707
